FAERS Safety Report 26209699 (Version 1)
Quarter: 2025Q4

REPORT INFORMATION
  Report Type: Spontaneous
  Country: CN (occurrence: CN)
  Receive Date: 20251229
  Receipt Date: 20251229
  Transmission Date: 20260117
  Serious: Yes (Disabling)
  Sender: PFIZER
  Company Number: CN-PFIZER INC-PV202500149830

PATIENT
  Age: 39 Year
  Sex: Female
  Weight: 58 kg

DRUGS (1)
  1. AXITINIB [Suspect]
     Active Substance: AXITINIB
     Indication: Renal cell carcinoma
     Dosage: 5 MG, 2X/DAY
     Route: 048
     Dates: start: 20250725, end: 20250903

REACTIONS (2)
  - Thyroid disorder [Recovering/Resolving]
  - Hypothyroidism [Recovering/Resolving]

NARRATIVE: CASE EVENT DATE: 20251031
